FAERS Safety Report 8820041 (Version 1)
Quarter: 2012Q4

REPORT INFORMATION
  Report Type: 
  Country: DE (occurrence: DE)
  Receive Date: 20121001
  Receipt Date: 20121001
  Transmission Date: 20130627
  Serious: Yes (Other)
  Sender: FDA-Public Use
  Company Number: DE-PFIZER INC-2012242295

PATIENT
  Age: 65 Year
  Sex: Female

DRUGS (1)
  1. SERTRALINE HCL [Suspect]
     Dosage: 50 mg, 1x/day, since 4 days

REACTIONS (3)
  - Suicidal ideation [Unknown]
  - Agitation [Unknown]
  - Depersonalisation [Unknown]
